FAERS Safety Report 9677146 (Version 1)
Quarter: 2013Q4

REPORT INFORMATION
  Report Type: Report from Study
  Country: US (occurrence: US)
  Receive Date: 20131108
  Receipt Date: 20131108
  Transmission Date: 20140711
  Serious: Yes (Other)
  Sender: FDA-Public Use
  Company Number: US-ROCHE-1300065

PATIENT
  Sex: 0

DRUGS (1)
  1. BEVACIZUMAB [Suspect]
     Indication: COLORECTAL CANCER METASTATIC
     Route: 065

REACTIONS (12)
  - Thrombocytopenia [Unknown]
  - Deep vein thrombosis [Unknown]
  - Pulmonary embolism [Unknown]
  - Hypertension [Unknown]
  - Rectal haemorrhage [Unknown]
  - Gastrointestinal perforation [Unknown]
  - Hypersensitivity [Unknown]
  - Epistaxis [Unknown]
  - Varices oesophageal [Unknown]
  - Impaired healing [Unknown]
  - Nephrotic syndrome [Unknown]
  - Posterior reversible encephalopathy syndrome [Unknown]
